FAERS Safety Report 25564773 (Version 1)
Quarter: 2025Q3

REPORT INFORMATION
  Report Type: Spontaneous
  Country: US (occurrence: None)
  Receive Date: 20250715
  Receipt Date: 20250715
  Transmission Date: 20251021
  Serious: Yes (Death)
  Sender: FDA-CTU
  Company Number: None

PATIENT
  Sex: Male

DRUGS (11)
  1. LENALIDOMIDE [Suspect]
     Active Substance: LENALIDOMIDE
     Indication: Plasma cell myeloma in remission
     Dosage: FREQUENCY : DAILY;?
     Dates: start: 20240828, end: 202506
  2. AMLODIPINE [Concomitant]
     Active Substance: AMLODIPINE BESYLATE
  3. AMLODIPINE TAB5MG [Concomitant]
  4. ASPIRIN EC TAB 81 MG [Concomitant]
  5. CALCIUM TAB 600MG [Concomitant]
  6. CEFDINIR [Concomitant]
     Active Substance: CEFDINIR
  7. ELTROMBOPAG TAB 50MG [Concomitant]
  8. ESCITALOPRAM [Concomitant]
     Active Substance: ESCITALOPRAM OXALATE
  9. FOLIC ACID TAB 1000MCG [Concomitant]
  10. HYDRALAZINE [Concomitant]
     Active Substance: HYDRALAZINE HYDROCHLORIDE
  11. IBANDRONATE TAB 150MG [Concomitant]

REACTIONS (1)
  - Death [None]
